FAERS Safety Report 5126863-2 (Version None)
Quarter: 2006Q3

REPORT INFORMATION
  Report Type: 
  Country: None (occurrence: None)
  Receive Date: 20060825
  Receipt Date: 20060525
  Transmission Date: 20061208
  Serious: No
  Sender: FDA-Public Use
  Company Number: 2006US003114

PATIENT
  Age: 43 Year
  Sex: Female
  Weight: 75 kg

DRUGS (4)
  1. ALOXI [Suspect]
     Indication: PROPHYLAXIS OF NAUSEA AND VOMITING
     Dosage: 0.25 MG,BID, INTRAVENOUS
     Route: 042
     Dates: start: 20060525, end: 20060525
  2. ZANTAC [Concomitant]
  3. DEXAMETHASONE TAB [Concomitant]
  4. PACLITAXEL [Concomitant]

REACTIONS (1)
  - INCORRECT DOSE ADMINISTERED [None]
